FAERS Safety Report 5502483-2 (Version None)
Quarter: 2007Q4

REPORT INFORMATION
  Report Type: 
  Country: None (occurrence: None)
  Receive Date: 20071030
  Receipt Date: 20071018
  Transmission Date: 20080405
  Serious: Yes (Other)
  Sender: FDA-Public Use
  Company Number: US-PFIZER INC-2007088720

PATIENT
  Sex: Female
  Weight: 68.181 kg

DRUGS (3)
  1. ZITHROMAX [Suspect]
     Indication: EAR INFECTION
     Dates: start: 20071001, end: 20071003
  2. ZITHROMAX [Suspect]
     Indication: UPPER RESPIRATORY TRACT INFECTION
  3. ANTITUSSIVES, EXCL COMBINATIONS WITH EXPECTOR [Concomitant]

REACTIONS (3)
  - EYE SWELLING [None]
  - PRURITUS [None]
  - URTICARIA [None]
